FAERS Safety Report 24404779 (Version 1)
Quarter: 2024Q4

REPORT INFORMATION
  Report Type: Spontaneous
  Country: US (occurrence: None)
  Receive Date: 20241004
  Receipt Date: 20241004
  Transmission Date: 20250114
  Serious: Yes (Hospitalization)
  Sender: Public
  Company Number: None

PATIENT
  Sex: Female

DRUGS (6)
  1. STELARA [Suspect]
     Active Substance: USTEKINUMAB
     Dosage: FREQUENCY : MONTHLY;?
     Route: 058
     Dates: start: 202303
  2. IBUPROFEN [Concomitant]
     Active Substance: IBUPROFEN
  3. BUTRANS [Concomitant]
     Active Substance: BUPRENORPHINE
  4. ZEPBOUND [Concomitant]
     Active Substance: TIRZEPATIDE
  5. TYLENOL [Concomitant]
     Active Substance: ACETAMINOPHEN
  6. NORCO [Concomitant]
     Active Substance: ACETAMINOPHEN\HYDROCODONE BITARTRATE

REACTIONS (10)
  - Fall [None]
  - Rib fracture [None]
  - Overdose [None]
  - Urinary tract infection [None]
  - Diarrhoea [None]
  - Nausea [None]
  - Breast cancer [None]
  - Headache [None]
  - Gastrooesophageal reflux disease [None]
  - Intracranial aneurysm [None]
